FAERS Safety Report 8585639 (Version 2)
Quarter: 2013Q2

REPORT INFORMATION
  Report Type: Spontaneous
  Country: US (occurrence: US)
  Receive Date: 20120530
  Receipt Date: 20130530
  Transmission Date: 20140414
  Serious: No
  Sender: FDA-Public Use
  Company Number: US-GLAXOSMITHKLINE-A0948848A

PATIENT
  Age: 16 Year
  Sex: Female
  Weight: 30 kg

DRUGS (14)
  1. FLOLAN [Suspect]
     Indication: PULMONARY ARTERIAL HYPERTENSION
     Dosage: 96NGKM CONTINUOUS
     Route: 042
     Dates: start: 20050511
  2. REVATIO [Suspect]
     Indication: PULMONARY ARTERIAL HYPERTENSION
     Dosage: 15MG FOUR TIMES PER DAY
     Route: 065
  3. TRACLEER [Concomitant]
     Dosage: 62MG TWICE PER DAY
  4. TRAMADOL [Concomitant]
  5. AMBIEN [Concomitant]
     Dosage: 25MG AS REQUIRED
  6. ZANTAC [Concomitant]
     Dosage: 75MG TWICE PER DAY
  7. SYNTHROID [Concomitant]
     Dosage: 37.5MG PER DAY
  8. CENTRUM [Concomitant]
     Dosage: 1TAB PER DAY
  9. FUROSEMIDE [Concomitant]
     Dosage: 20MG TWICE PER DAY
  10. ENALAPRIL [Concomitant]
     Dosage: 20MG TWICE PER DAY
  11. POTASSIUM [Concomitant]
     Dosage: 5MG PER DAY
  12. ZOFRAN [Concomitant]
     Dosage: 4MG AS REQUIRED
  13. ALBUTEROL [Concomitant]
     Route: 055
  14. XOPENEX [Concomitant]
     Route: 055

REACTIONS (5)
  - Headache [Recovered/Resolved]
  - Feeling hot [Recovered/Resolved]
  - Dizziness [Recovered/Resolved]
  - Pain in jaw [Recovered/Resolved]
  - Diarrhoea [Recovered/Resolved]
